FAERS Safety Report 8996846 (Version 1)
Quarter: 2012Q4

REPORT INFORMATION
  Report Type: Spontaneous
  Country: FR (occurrence: None)
  Receive Date: 20121221
  Receipt Date: 20121221
  Transmission Date: 20130627
  Serious: Yes (Hospitalization)
  Sender: FDA-Public Use
  Company Number: DSA_61523_2012

PATIENT
  Age: 55 Year
  Sex: Female

DRUGS (16)
  1. FLAGYL /00012501/ (FLAGYL (METRONIDAZOLE)) 500 MG (NOT SPECIFIED) [Suspect]
     Route: 048
     Dates: start: 20121024, end: 20121113
  2. ROCEPHINE [Concomitant]
  3. ESOMEPRAZOLE [Concomitant]
  4. OXYCONTIN [Concomitant]
  5. OXYNORM [Concomitant]
  6. PRIMPERAN [Concomitant]
  7. LOVENOX [Concomitant]
  8. DEBRIDAT /00465202/ [Concomitant]
  9. SPASFON /00765801/ [Concomitant]
  10. PARACETAMOL [Concomitant]
  11. NOVORAPID [Concomitant]
  12. XANAX [Concomitant]
  13. SEROPLEX [Concomitant]
  14. CACIT D3 [Concomitant]
  15. MAG 2 /01486821/ [Concomitant]
  16. ACUPAN [Concomitant]

REACTIONS (2)
  - Pancreatitis [None]
  - Cholestasis [None]
